FAERS Safety Report 4861812-3 (Version None)
Quarter: 2005Q4

REPORT INFORMATION
  Report Type: 
  Country: None (occurrence: None)
  Receive Date: 20051130
  Receipt Date: 20050623
  Transmission Date: 20060501
  Serious: Yes (Disabling)
  Sender: FDA-Public Use
  Company Number: 2005074424

PATIENT
  Age: 26 Year
  Sex: Female

DRUGS (3)
  1. ZYVOX [Suspect]
     Indication: PNEUMONIA
     Dosage: 1200 MG (600 MG,Q12H INTERVAL: EVERYDAY),ORAL
     Route: 048
     Dates: start: 20050603, end: 20050614
  2. FLAGYL [Suspect]
     Indication: COLITIS
     Dosage: 1500 MG (500 MG,Q8H INTERVAL: EVERYDAY),ORAL
     Route: 048
     Dates: start: 20050606, end: 20050614
  3. DIFLUCAN (FLUCONAZOLE) [Concomitant]

REACTIONS (3)
  - NAUSEA [None]
  - RETCHING [None]
  - VOMITING [None]
